FAERS Safety Report 21712896 (Version 1)
Quarter: 2022Q4

REPORT INFORMATION
  Report Type: Spontaneous
  Country: LT (occurrence: LT)
  Receive Date: 20221212
  Receipt Date: 20221212
  Transmission Date: 20230113
  Serious: Yes (Death)
  Sender: FDA-Public Use
  Company Number: LT-MYLANLABS-2022M1137718

PATIENT
  Age: 34 Year
  Sex: Male

DRUGS (9)
  1. VANCOMYCIN [Suspect]
     Active Substance: VANCOMYCIN
     Indication: Pneumonia
     Dosage: 1 GRAM, QD
     Route: 065
     Dates: start: 20211117
  2. CEFUROXIME [Concomitant]
     Active Substance: CEFUROXIME
     Indication: Pneumonia
     Dosage: 1.5 GRAM, QD
     Route: 065
     Dates: start: 20211117
  3. PIPERACILLIN AND TAZOBACTAM [Concomitant]
     Active Substance: PIPERACILLIN SODIUM\TAZOBACTAM SODIUM
     Indication: Pneumonia
     Dosage: 4.5 GRAM, BID (2 TIMES PER DAY)
     Route: 065
     Dates: start: 20211117
  4. MEROPENEM [Concomitant]
     Active Substance: MEROPENEM
     Indication: Pneumonia
     Dosage: 2 GRAM, TID (3 TIMES A DAY)
     Route: 065
     Dates: start: 20211117, end: 20211117
  5. CLINDAMYCIN [Concomitant]
     Active Substance: CLINDAMYCIN
     Indication: Pneumonia
     Dosage: 600 MILLIGRAM, TID (3 TIMES A DAY)
     Route: 065
     Dates: start: 20211118
  6. HYDROCORTISONE [Concomitant]
     Active Substance: HYDROCORTISONE
     Indication: Pneumonia
     Dosage: 50 MILLIGRAM, QID
     Route: 065
     Dates: start: 20211118
  7. HYDROCORTISONE [Concomitant]
     Active Substance: HYDROCORTISONE
     Indication: Organ failure
  8. HYDROCORTISONE [Concomitant]
     Active Substance: HYDROCORTISONE
     Indication: Purpura
  9. ACYCLOVIR [Concomitant]
     Active Substance: ACYCLOVIR
     Dosage: 10 MILLIGRAM/KILOGRAM, TID
     Route: 065
     Dates: start: 20211118

REACTIONS (1)
  - Pneumococcal sepsis [Fatal]

NARRATIVE: CASE EVENT DATE: 20211117
